FAERS Safety Report 5629176-5 (Version None)
Quarter: 2008Q1

REPORT INFORMATION
  Report Type: 
  Country: None (occurrence: None)
  Receive Date: 20080217
  Receipt Date: 20080125
  Transmission Date: 20080703
  Serious: No
  Sender: FDA-Public Use
  Company Number: US-BAXTER-2008BH000831

PATIENT
  Age: 80 Year

DRUGS (6)
  1. HEPARIN SODIUM [Suspect]
     Indication: PROPHYLAXIS
     Route: 033
     Dates: start: 20050501
  2. HEPARIN SODIUM [Suspect]
     Route: 033
     Dates: start: 20050501
  3. DIANEAL [Concomitant]
     Indication: PERITONEAL DIALYSIS
     Route: 033
     Dates: start: 20050101
  4. LISINOPRIL [Concomitant]
     Indication: DRUG USE FOR UNKNOWN INDICATION
     Route: 065
  5. DOXAZOSIN MESYLATE [Concomitant]
     Indication: DRUG USE FOR UNKNOWN INDICATION
     Route: 065
  6. COZAAR [Concomitant]
     Indication: DRUG USE FOR UNKNOWN INDICATION
     Route: 065

REACTIONS (2)
  - HYPOTENSION [None]
  - MALAISE [None]
